FAERS Safety Report 10722526 (Version 2)
Quarter: 2015Q1

REPORT INFORMATION
  Report Type: Spontaneous
  Country: CZ (occurrence: CZ)
  Receive Date: 20150119
  Receipt Date: 20150127
  Transmission Date: 20150721
  Serious: Yes (Other)
  Sender: FDA-Public Use
  Company Number: CZ-ROCHE-1523201

PATIENT
  Age: 66 Year
  Sex: Male

DRUGS (3)
  1. ZELBORAF [Suspect]
     Active Substance: VEMURAFENIB
     Indication: METASTATIC MALIGNANT MELANOMA
     Dosage: 4-0-4 TABLET
     Route: 048
     Dates: start: 20140609, end: 20140701
  2. ZELBORAF [Suspect]
     Active Substance: VEMURAFENIB
     Dosage: 2-0-2 TBL.
     Route: 048
     Dates: start: 20140716
  3. ZELBORAF [Suspect]
     Active Substance: VEMURAFENIB
     Dosage: 3-0-3 TBL.
     Route: 048
     Dates: start: 20140702, end: 20140709

REACTIONS (1)
  - Skin toxicity [Recovered/Resolved with Sequelae]

NARRATIVE: CASE EVENT DATE: 20140613
